FAERS Safety Report 18905767 (Version 1)
Quarter: 2021Q1

REPORT INFORMATION
  Report Type: Spontaneous
  Country: CA (occurrence: CA)
  Receive Date: 20210217
  Receipt Date: 20210217
  Transmission Date: 20210420
  Serious: Yes (Other)
  Sender: FDA-Public Use
  Company Number: CA-ALLERGAN-2106678US

PATIENT
  Sex: Female

DRUGS (17)
  1. CYPROHEPTADINE. [Suspect]
     Active Substance: CYPROHEPTADINE
     Indication: MIGRAINE
     Dosage: 4 MG, UNK
  2. BETAHISTINE [Concomitant]
     Active Substance: BETAHISTINE
     Indication: MIGRAINE
     Dosage: 8 MG, UNK
  3. NOVO?FAMOTIDINE [Concomitant]
     Indication: MIGRAINE
     Dosage: 40 MG, UNK
  4. PANTOPRAZOLE [Concomitant]
     Active Substance: PANTOPRAZOLE
     Indication: MIGRAINE
     Dosage: 40 MG, UNK
     Route: 065
  5. PMS?AZITHROMYCIN [Concomitant]
     Active Substance: AZITHROMYCIN ANHYDROUS
     Indication: MIGRAINE
     Dosage: 250 MG, UNK
     Route: 065
  6. BOTULINUM TOXIN TYPE A UNK [Suspect]
     Active Substance: BOTULINUM TOXIN TYPE A
     Indication: MIGRAINE
     Dosage: UNK UNK, SINGLE
  7. ALMOTRIPTAN. [Suspect]
     Active Substance: ALMOTRIPTAN
     Indication: MIGRAINE
     Dosage: 12.5 MG, UNK
  8. GABAPENTIN. [Concomitant]
     Active Substance: GABAPENTIN
     Indication: MIGRAINE
  9. MOMETASONE [Concomitant]
     Active Substance: MOMETASONE
     Indication: MIGRAINE
     Dosage: 50 MG, UNK
  10. CANDESARTAN CILEXETIL. [Suspect]
     Active Substance: CANDESARTAN CILEXETIL
     Indication: MIGRAINE
     Dosage: 4 MG, UNK
     Route: 048
  11. CYCLOMEN [Concomitant]
     Active Substance: DANAZOL
     Indication: MIGRAINE
     Dosage: 50 MG, UNK
  12. DEPO?MEDROL [Concomitant]
     Active Substance: METHYLPREDNISOLONE ACETATE
     Indication: MIGRAINE
     Route: 014
  13. CYCLOMEN [Concomitant]
     Active Substance: DANAZOL
     Dosage: 50 MG, UNK
  14. ERYTHROMYCIN ESTOLATE. [Concomitant]
     Active Substance: ERYTHROMYCIN ESTOLATE
     Indication: MIGRAINE
     Dosage: 250 MG, UNK
  15. LORAZEPAM. [Concomitant]
     Active Substance: LORAZEPAM
     Indication: MIGRAINE
     Dosage: 1 MG, UNK
  16. MEMANTINE HCL UNK [Suspect]
     Active Substance: MEMANTINE HYDROCHLORIDE
     Indication: MIGRAINE
     Dosage: 10 MG, UNK
  17. RIZATRIPTAN BENZOATE. [Suspect]
     Active Substance: RIZATRIPTAN BENZOATE
     Indication: MIGRAINE
     Dosage: 10 MG, UNK

REACTIONS (7)
  - Muscle spasms [Recovered/Resolved]
  - Drug intolerance [Unknown]
  - Periorbital swelling [Recovered/Resolved]
  - Drug ineffective for unapproved indication [Unknown]
  - Anaphylactic reaction [Recovered/Resolved]
  - Product use in unapproved indication [Unknown]
  - Periorbital oedema [Recovered/Resolved]
